FAERS Safety Report 6069625-4 (Version None)
Quarter: 2009Q1

REPORT INFORMATION
  Report Type: 
  Country: None (occurrence: None)
  Receive Date: 20090209
  Receipt Date: 20090204
  Transmission Date: 20090719
  Serious: Yes (Other)
  Sender: FDA-Public Use
  Company Number: US-BRISTOL-MYERS SQUIBB COMPANY-14466262

PATIENT
  Age: 33 Year
  Sex: Female
  Weight: 113 kg

DRUGS (2)
  1. ABILIFY [Suspect]
     Indication: SUICIDAL IDEATION
     Dosage: STARTED WITH ARIPIPRAZOLE 10MG
  2. LEXAPRO [Suspect]
     Indication: SUICIDAL IDEATION

REACTIONS (1)
  - CEREBROVASCULAR ACCIDENT [None]
